FAERS Safety Report 20397279 (Version 2)
Quarter: 2022Q1

REPORT INFORMATION
  Report Type: Spontaneous
  Country: US (occurrence: US)
  Receive Date: 20220131
  Receipt Date: 20220201
  Transmission Date: 20220423
  Serious: No
  Sender: FDA-Public Use
  Company Number: US-ABBVIE-21K-163-3916785-00

PATIENT
  Sex: Male
  Weight: 145.28 kg

DRUGS (1)
  1. HUMIRA [Suspect]
     Active Substance: ADALIMUMAB
     Indication: Crohn^s disease
     Route: 058
     Dates: start: 201904

REACTIONS (12)
  - Hyperaesthesia teeth [Unknown]
  - Autoimmune disorder [Unknown]
  - Memory impairment [Unknown]
  - Diabetes mellitus [Not Recovered/Not Resolved]
  - Skin exfoliation [Unknown]
  - Neuropathy peripheral [Unknown]
  - Eczema [Unknown]
  - Nephrolithiasis [Unknown]
  - Arthritis [Unknown]
  - Psoriasis [Not Recovered/Not Resolved]
  - Cystitis [Unknown]
  - Hypersensitivity [Unknown]
